FAERS Safety Report 7484725-X (Version None)
Quarter: 2011Q1

REPORT INFORMATION
  Report Type: 
  Country: None (occurrence: None)
  Receive Date: 20110309
  Receipt Date: 20110211
  Transmission Date: 20110831
  Serious: Yes (Disabling)
  Sender: FDA-Public Use
  Company Number: 2011SP006720

PATIENT
  Age: 74 Year
  Sex: Female

DRUGS (6)
  1. ATIVAN [Concomitant]
  2. LACIDIPINE [Concomitant]
  3. SAPHRIS [Suspect]
     Indication: BIPOLAR DISORDER
     Dosage: 5 MG; BID; PO
     Route: 048
     Dates: start: 20101001
  4. LISINOPRIL [Concomitant]
  5. CYMBALTA [Concomitant]
  6. ARICEPT [Concomitant]

REACTIONS (2)
  - SWOLLEN TONGUE [None]
  - INCORRECT ROUTE OF DRUG ADMINISTRATION [None]
